FAERS Safety Report 7633800-5 (Version None)
Quarter: 2011Q3

REPORT INFORMATION
  Report Type: 
  Country: None (occurrence: None)
  Receive Date: 20110725
  Receipt Date: 20110719
  Transmission Date: 20111222
  Serious: Yes (Other)
  Sender: FDA-Public Use
  Company Number: GB-MERCK-1002GBR00016

PATIENT
  Age: 66 Year
  Sex: Female
  Weight: 71 kg

DRUGS (4)
  1. LEVOTHYROXINE SODIUM [Concomitant]
     Route: 065
  2. MAXALT [Suspect]
     Indication: MIGRAINE
     Route: 048
     Dates: start: 20020101, end: 20100101
  3. AMITRIPTYLINE HYDROCHLORIDE [Concomitant]
     Indication: DEPRESSION
     Route: 065
     Dates: end: 20100101
  4. IBUPROFEN [Concomitant]
     Route: 065

REACTIONS (3)
  - HEADACHE [None]
  - SILENT MYOCARDIAL INFARCTION [None]
  - DRUG INEFFECTIVE [None]
